FAERS Safety Report 12484642 (Version 6)
Quarter: 2018Q3

REPORT INFORMATION
  Report Type: Report from Study
  Country: JP (occurrence: JP)
  Receive Date: 20160621
  Receipt Date: 20180808
  Transmission Date: 20181010
  Serious: Yes (Hospitalization, Other)
  Sender: FDA-Public Use
  Company Number: JP-ASTELLAS-2009JP000023

PATIENT
  Age: 66 Year
  Sex: Female
  Weight: 47 kg

DRUGS (68)
  1. TACROLIMUS. [Suspect]
     Active Substance: TACROLIMUS
     Route: 048
     Dates: start: 20090108
  2. GASTER [Concomitant]
     Active Substance: FAMOTIDINE
     Indication: PROPHYLAXIS
     Route: 048
     Dates: start: 20080402, end: 20141224
  3. ZETIA [Concomitant]
     Active Substance: EZETIMIBE
     Indication: HYPERLIPIDAEMIA
     Route: 048
     Dates: start: 20080716, end: 20090107
  4. BASEN                              /01290601/ [Concomitant]
     Active Substance: VOGLIBOSE
     Indication: GLUCOSE TOLERANCE IMPAIRED
     Dosage: 0.9 MG, ONCE DAILY
     Route: 048
     Dates: start: 20090624, end: 20130829
  5. BIO?THREE [Concomitant]
     Active Substance: HERBALS
     Indication: CONSTIPATION
     Route: 048
     Dates: start: 20160901, end: 20161005
  6. CALONAL [Concomitant]
     Active Substance: ACETAMINOPHEN
     Indication: BRONCHITIS
     Route: 048
     Dates: start: 20151015, end: 20151020
  7. DOXAZOSIN MESILATE [Concomitant]
     Active Substance: DOXAZOSIN MESYLATE
     Indication: HYPERTENSION
     Route: 048
     Dates: start: 20141225, end: 20150528
  8. LOXOPROFEN NA [Concomitant]
     Active Substance: LOXOPROFEN SODIUM
     Indication: OSTEOARTHRITIS
     Dosage: UNK UNK, AS NEEDED WHEN IN PAIN
     Route: 048
     Dates: start: 20150417
  9. CELLCEPT [Concomitant]
     Active Substance: MYCOPHENOLATE MOFETIL\MYCOPHENOLATE MOFETIL HYDROCHLORIDE
     Route: 048
     Dates: start: 20160728
  10. PREDNISOLONE. [Suspect]
     Active Substance: PREDNISOLONE
     Route: 048
     Dates: start: 20081030, end: 20090107
  11. BONALON [Concomitant]
     Active Substance: ALENDRONATE SODIUM
     Route: 048
     Dates: start: 20140801
  12. ZETIA [Concomitant]
     Active Substance: EZETIMIBE
     Route: 048
     Dates: start: 20090108
  13. CLARITH [Concomitant]
     Active Substance: CLARITHROMYCIN
     Route: 048
     Dates: start: 20140417, end: 20140421
  14. ASTOMIN                            /00426502/ [Concomitant]
     Active Substance: DIMEMORFAN PHOSPHATE
     Route: 048
     Dates: start: 20140305, end: 20140421
  15. ASTOMIN                            /00426502/ [Concomitant]
     Active Substance: DIMEMORFAN PHOSPHATE
     Route: 048
     Dates: start: 20151015, end: 20151020
  16. MUCOSTA [Concomitant]
     Active Substance: REBAMIPIDE
     Indication: PROPHYLAXIS AGAINST GASTROINTESTINAL ULCER
     Route: 048
     Dates: start: 20160914, end: 20160928
  17. TRAMCET [Concomitant]
     Active Substance: ACETAMINOPHEN\TRAMADOL
     Indication: BACK PAIN
     Route: 048
     Dates: start: 20150617
  18. CARBOCISTEINE [Concomitant]
     Active Substance: CARBOCYSTEINE
     Indication: UPPER RESPIRATORY TRACT INFECTION
     Route: 048
     Dates: start: 20160121, end: 20160125
  19. PREDNISOLONE. [Suspect]
     Active Substance: PREDNISOLONE
     Indication: LUPUS NEPHRITIS
     Route: 048
     Dates: start: 20080630, end: 20080820
  20. PREDNISOLONE. [Suspect]
     Active Substance: PREDNISOLONE
     Route: 048
     Dates: start: 20090108, end: 20090512
  21. CARDENALIN [Concomitant]
     Active Substance: DOXAZOSIN MESYLATE
     Route: 048
     Dates: start: 20120425, end: 20141224
  22. CALONAL [Concomitant]
     Active Substance: ACETAMINOPHEN
     Indication: INFLUENZA
     Route: 048
     Dates: start: 20130123, end: 20130127
  23. FAMOTIDINE. [Concomitant]
     Active Substance: FAMOTIDINE
     Indication: PROPHYLAXIS
     Route: 048
     Dates: start: 20141225, end: 20161109
  24. MOHRUS [Concomitant]
     Active Substance: KETOPROFEN
     Indication: BACK PAIN
     Route: 065
     Dates: start: 20150617
  25. AMLODIPINE                         /00972402/ [Concomitant]
     Active Substance: AMLODIPINE BESYLATE
     Indication: HYPERTENSION
     Route: 048
     Dates: start: 20160209
  26. DIART [Concomitant]
     Active Substance: AZOSEMIDE
     Indication: OEDEMA
     Route: 065
     Dates: start: 20160728
  27. TACROLIMUS. [Suspect]
     Active Substance: TACROLIMUS
     Route: 048
     Dates: start: 20080305, end: 20090107
  28. BONALON [Concomitant]
     Active Substance: ALENDRONATE SODIUM
     Indication: PROPHYLAXIS
     Route: 048
     Dates: start: 20080630, end: 20140528
  29. FLOMOX                             /01418603/ [Concomitant]
     Active Substance: CEFCAPENE PIVOXIL HYDROCHLORIDE HYDRATE
     Indication: CYSTITIS
     Route: 048
     Dates: start: 20110119, end: 20110123
  30. SENNOSIDE                          /00571901/ [Concomitant]
     Active Substance: SENNOSIDES A AND B
     Indication: CONSTIPATION
     Dosage: UNK UNK, AS NEEDED  WHEN CONSTIPATED
     Route: 048
     Dates: start: 20130911, end: 20131211
  31. EQUA [Concomitant]
     Active Substance: VILDAGLIPTIN
     Indication: GLUCOSE TOLERANCE IMPAIRED
     Route: 048
     Dates: start: 20131023, end: 20131211
  32. BENET [Concomitant]
     Active Substance: RISEDRONATE SODIUM
     Indication: PROPHYLAXIS
     Route: 048
     Dates: start: 20140529, end: 20140731
  33. REBAMIPIDE [Concomitant]
     Active Substance: REBAMIPIDE
     Indication: OSTEOARTHRITIS
     Dosage: UNK UNK, AS NEEDED WHEN IN PAIN
     Route: 048
     Dates: start: 20150417
  34. TEPRENONE [Concomitant]
     Active Substance: TEPRENONE
     Indication: OSTEOARTHRITIS
     Dosage: UNK UNK, AS NEEDED WHEN IN PAIN
     Route: 048
     Dates: start: 20150610
  35. CELECOX [Concomitant]
     Active Substance: CELECOXIB
     Route: 048
     Dates: start: 20160914, end: 20160928
  36. DAIPHEN [Concomitant]
     Active Substance: SULFAMETHOXAZOLE\TRIMETHOPRIM
     Indication: INFECTION PROPHYLAXIS
     Dosage: 0.5 DF, ONCE DAILY
     Route: 048
     Dates: start: 20160728
  37. PREDNISOLONE. [Suspect]
     Active Substance: PREDNISOLONE
     Route: 048
     Dates: start: 20080925, end: 20081029
  38. METHYLPREDNISOLONE. [Suspect]
     Active Substance: METHYLPREDNISOLONE
     Indication: LUPUS NEPHRITIS
     Route: 065
     Dates: start: 20080627, end: 20080629
  39. MICARDIS [Concomitant]
     Active Substance: TELMISARTAN
     Indication: HYPERTENSION
     Route: 048
     Dates: start: 20080123, end: 20160519
  40. CLARITH [Concomitant]
     Active Substance: CLARITHROMYCIN
     Indication: BRONCHITIS
     Route: 048
     Dates: start: 20120606, end: 20120608
  41. CLARITH [Concomitant]
     Active Substance: CLARITHROMYCIN
     Indication: UPPER RESPIRATORY TRACT INFECTION
     Route: 048
     Dates: start: 20120718, end: 20120720
  42. PL [Concomitant]
     Active Substance: ACETAMINOPHEN\CAFFEINE\PROMETHAZINE\SALICYLAMIDE
     Indication: BRONCHITIS
     Route: 048
     Dates: start: 20140305, end: 20140421
  43. PREDNISOLONE. [Suspect]
     Active Substance: PREDNISOLONE
     Route: 048
     Dates: start: 20161006
  44. FLOMOX                             /01418603/ [Concomitant]
     Active Substance: CEFCAPENE PIVOXIL HYDROCHLORIDE HYDRATE
     Indication: BRONCHITIS
     Route: 048
     Dates: start: 20151015, end: 20151020
  45. BIO?THREE [Concomitant]
     Active Substance: HERBALS
     Indication: ENTEROCOLITIS
     Route: 048
     Dates: start: 20110131, end: 20150402
  46. CARDENALIN [Concomitant]
     Active Substance: DOXAZOSIN MESYLATE
     Indication: HYPERTENSION
     Route: 048
     Dates: start: 20111109, end: 20120424
  47. CLARITH [Concomitant]
     Active Substance: CLARITHROMYCIN
     Route: 048
     Dates: start: 20130508, end: 20130510
  48. ASTOMIN                            /00426502/ [Concomitant]
     Active Substance: DIMEMORFAN PHOSPHATE
     Indication: UPPER RESPIRATORY TRACT INFECTION
     Route: 048
     Dates: start: 20120718, end: 20120724
  49. ASTOMIN                            /00426502/ [Concomitant]
     Active Substance: DIMEMORFAN PHOSPHATE
     Route: 048
     Dates: start: 20160121, end: 20160125
  50. TAMIFLU [Concomitant]
     Active Substance: OSELTAMIVIR PHOSPHATE
     Indication: INFLUENZA
     Route: 048
     Dates: start: 20130123, end: 20130127
  51. SENNOSIDE                          /00571901/ [Concomitant]
     Active Substance: SENNOSIDES A AND B
     Indication: CONSTIPATION
     Dosage: UNK UNK, AS NEEDED WHEN CONSTIPATED
     Route: 048
     Dates: start: 20150924, end: 20151023
  52. RINDERON VG [Concomitant]
     Active Substance: BETAMETHASONE VALERATE\GENTAMICIN SULFATE
     Indication: ECZEMA
     Dosage: UNK UNK, SEVERAL TIMES/DAY
     Route: 061
     Dates: start: 20141225, end: 20150917
  53. REBAMIPIDE [Concomitant]
     Active Substance: REBAMIPIDE
     Indication: BACK PAIN
     Dosage: UNK UNK, UNKNOWN FREQ.
     Route: 048
  54. RHUBARB. [Concomitant]
     Active Substance: RHUBARB
     Indication: CONSTIPATION
     Route: 048
     Dates: start: 20150924, end: 20151023
  55. CELLCEPT [Concomitant]
     Active Substance: MYCOPHENOLATE MOFETIL\MYCOPHENOLATE MOFETIL HYDROCHLORIDE
     Indication: LUPUS NEPHRITIS
     Route: 048
     Dates: start: 20160421, end: 20160727
  56. TACROLIMUS. [Suspect]
     Active Substance: TACROLIMUS
     Indication: LUPUS NEPHRITIS
     Route: 048
     Dates: start: 20080109, end: 20080304
  57. CALBLOCK [Concomitant]
     Active Substance: AZELNIDIPINE
     Indication: HYPERTENSION
     Route: 048
     Dates: start: 20080305, end: 20150528
  58. DOMPERIDONE [Concomitant]
     Active Substance: DOMPERIDONE
     Indication: PROPHYLAXIS
     Route: 048
     Dates: start: 20150617, end: 20150630
  59. CELECOX [Concomitant]
     Active Substance: CELECOXIB
     Indication: BACK PAIN
     Route: 048
     Dates: start: 20150617, end: 20150915
  60. CARBOCISTEINE [Concomitant]
     Active Substance: CARBOCYSTEINE
     Indication: BRONCHITIS
     Route: 048
     Dates: start: 20151015, end: 20151020
  61. PREDNISOLONE. [Suspect]
     Active Substance: PREDNISOLONE
     Route: 048
     Dates: start: 20080821, end: 20080924
  62. PREDNISOLONE. [Suspect]
     Active Substance: PREDNISOLONE
     Route: 048
     Dates: start: 20090513, end: 20161005
  63. TRAZENTA [Suspect]
     Active Substance: LINAGLIPTIN
     Indication: GLUCOSE TOLERANCE IMPAIRED
     Route: 048
     Dates: start: 20130911, end: 20130918
  64. CLARITH [Concomitant]
     Active Substance: CLARITHROMYCIN
     Route: 048
     Dates: start: 20160121, end: 20160125
  65. ASTOMIN                            /00426502/ [Concomitant]
     Active Substance: DIMEMORFAN PHOSPHATE
     Indication: BRONCHITIS
     Route: 048
     Dates: start: 20120606, end: 20120612
  66. ASTOMIN                            /00426502/ [Concomitant]
     Active Substance: DIMEMORFAN PHOSPHATE
     Indication: BRONCHITIS
     Route: 048
     Dates: start: 20130508, end: 20130510
  67. MUCOSTA [Concomitant]
     Active Substance: REBAMIPIDE
     Indication: INFLUENZA
     Route: 048
     Dates: start: 20130123, end: 20130127
  68. REBAMIPIDE [Concomitant]
     Active Substance: REBAMIPIDE
     Indication: BRONCHITIS
     Route: 048
     Dates: start: 20151015, end: 20151020

REACTIONS (16)
  - Influenza [Recovered/Resolved]
  - Osteoarthritis [Recovering/Resolving]
  - Bronchitis [Recovered/Resolved]
  - Glucose tolerance impaired [Not Recovered/Not Resolved]
  - Constipation [Recovered/Resolved]
  - Eczema [Recovered/Resolved]
  - Hypertension [Not Recovered/Not Resolved]
  - Upper respiratory tract infection [Recovered/Resolved]
  - Enterocolitis [Recovering/Resolving]
  - Cystitis [Recovered/Resolved]
  - Bronchitis [Recovered/Resolved]
  - Abdominal distension [Recovered/Resolved]
  - Oedema [Recovered/Resolved]
  - Constipation [Recovered/Resolved]
  - Hyperlipidaemia [Not Recovered/Not Resolved]
  - Back pain [Not Recovered/Not Resolved]

NARRATIVE: CASE EVENT DATE: 20080123
